FAERS Safety Report 8537159 (Version 3)
Quarter: 2012Q4

REPORT INFORMATION
  Report Type: 
  Country: US (occurrence: US)
  Receive Date: 20120430
  Receipt Date: 20121109
  Transmission Date: 20130627
  Serious: No
  Sender: FDA-Public Use
  Company Number: US-PFIZER INC-2012102909

PATIENT
  Age: 52 Year
  Sex: Female
  Weight: 61.22 kg

DRUGS (7)
  1. CHANTIX [Suspect]
     Indication: SMOKING CESSATION THERAPY
     Dosage: 0.5 mg, 1x/day
     Route: 048
     Dates: start: 20120128, end: 2012
  2. CHANTIX [Suspect]
     Dosage: UNK
     Route: 048
     Dates: start: 2012, end: 2012
  3. CHANTIX [Suspect]
     Dosage: UNK
     Route: 048
     Dates: start: 2012, end: 20120718
  4. CITALOPRAM [Concomitant]
     Indication: DEPRESSION
     Dosage: UNK
  5. XANAX [Concomitant]
     Indication: SLEEP PROBLEM
     Dosage: UNK, as needed
  6. FLUOXETINE [Concomitant]
     Indication: DEPRESSION
     Dosage: 40 mg, daily
  7. CLARITIN-D [Concomitant]
     Indication: SINUSITIS
     Dosage: UNK, as needed

REACTIONS (2)
  - Drug ineffective [Not Recovered/Not Resolved]
  - Nausea [Recovering/Resolving]
